FAERS Safety Report 16939956 (Version 3)
Quarter: 2019Q4

REPORT INFORMATION
  Report Type: Spontaneous
  Country: DK (occurrence: DK)
  Receive Date: 20191021
  Receipt Date: 20191116
  Transmission Date: 20200122
  Serious: Yes (Hospitalization, Other)
  Sender: FDA-Public Use
  Company Number: DK-AUROBINDO-AUR-APL-2019-067097

PATIENT
  Age: 45 Year
  Sex: Male

DRUGS (2)
  1. TRAMADOL AUROBINDO, HARD CAPSULES 50 MG [Suspect]
     Active Substance: TRAMADOL
     Indication: NECK PAIN
     Dosage: UNK (STRENGTH: 50 MG. DOSAGE: 3-4 TIMES DAILY)
     Route: 048
     Dates: start: 20181226
  2. GEMADOL (ETOFENAMATE) [Suspect]
     Active Substance: ETOFENAMATE
     Indication: NECK PAIN
     Dosage: 400 MILLIGRAM, ONCE A DAY
     Route: 048
     Dates: start: 20190208

REACTIONS (7)
  - Generalised tonic-clonic seizure [Recovered/Resolved]
  - Depressed level of consciousness [Recovered/Resolved]
  - Headache [Unknown]
  - Fatigue [Recovered/Resolved]
  - Eye movement disorder [Recovered/Resolved]
  - Withdrawal syndrome [Unknown]
  - Tongue biting [Recovered/Resolved]

NARRATIVE: CASE EVENT DATE: 20190215
